FAERS Safety Report 5416907-2 (Version None)
Quarter: 2007Q3

REPORT INFORMATION
  Report Type: 
  Country: None (occurrence: None)
  Receive Date: 20070816
  Receipt Date: 20070806
  Transmission Date: 20080115
  Serious: Yes (Death, Hospitalization, Other)
  Sender: FDA-Public Use
  Company Number: BR-PFIZER INC-2007062529

PATIENT
  Age: 54 Year
  Sex: Male

DRUGS (3)
  1. SUTENT [Suspect]
     Indication: RENAL CELL CARCINOMA STAGE UNSPECIFIED
     Dosage: FREQ:1/DAY: EVERY DAY
     Route: 048
     Dates: start: 20070701, end: 20070701
  2. CORTICOSTEROIDS [Concomitant]
  3. ANTIBIOTICS [Concomitant]

REACTIONS (3)
  - HERPES ZOSTER [None]
  - RESPIRATORY FAILURE [None]
  - VENTRICULAR ARRHYTHMIA [None]
